FAERS Safety Report 11210474 (Version 1)
Quarter: 2015Q2

REPORT INFORMATION
  Report Type: Spontaneous
  Country: US (occurrence: US)
  Receive Date: 20150622
  Receipt Date: 20150622
  Transmission Date: 20150821
  Serious: No
  Sender: FDA-Public Use
  Company Number: US-ASTELLAS-2014US021770

PATIENT
  Age: 71 Year
  Sex: Male

DRUGS (1)
  1. VESICARE [Suspect]
     Active Substance: SOLIFENACIN SUCCINATE
     Indication: HYPERTONIC BLADDER
     Route: 065
     Dates: start: 201411

REACTIONS (3)
  - Extra dose administered [Unknown]
  - Bowel movement irregularity [Recovering/Resolving]
  - Gastrointestinal hypermotility [Unknown]

NARRATIVE: CASE EVENT DATE: 201411
